FAERS Safety Report 7305807-9 (Version None)
Quarter: 2011Q1

REPORT INFORMATION
  Report Type: 
  Country: None (occurrence: None)
  Receive Date: 20110222
  Receipt Date: 20110214
  Transmission Date: 20110831
  Serious: Yes (Other)
  Sender: FDA-Public Use
  Company Number: US-ROCHE-738958

PATIENT
  Sex: Male
  Weight: 93 kg

DRUGS (3)
  1. MINOCYCLINE HCL [Concomitant]
     Dosage: DOSE: 50GD
     Dates: start: 20030408
  2. ACCUTANE [Suspect]
     Indication: ACNE
     Route: 065
     Dates: start: 20030101, end: 20030501
  3. ACCUTANE [Suspect]
     Route: 065
     Dates: start: 20040101, end: 20050501

REACTIONS (5)
  - INFLAMMATORY BOWEL DISEASE [None]
  - INTESTINAL HAEMORRHAGE [None]
  - COLITIS ULCERATIVE [None]
  - MENTAL DISORDER [None]
  - GASTROINTESTINAL INJURY [None]
